FAERS Safety Report 24141996 (Version 2)
Quarter: 2024Q3

REPORT INFORMATION
  Report Type: Spontaneous
  Country: PL (occurrence: PL)
  Receive Date: 20240726
  Receipt Date: 20240809
  Transmission Date: 20241016
  Serious: Yes (Other)
  Sender: TEVA
  Company Number: PL-ABBVIE-5842372

PATIENT
  Age: 73 Year
  Sex: Male

DRUGS (2)
  1. ACITRETIN [Suspect]
     Active Substance: ACITRETIN
     Indication: Pityriasis rubra pilaris
     Route: 048
     Dates: end: 2023
  2. ACITRETIN [Suspect]
     Active Substance: ACITRETIN
     Indication: Pityriasis rubra pilaris
     Route: 048
     Dates: start: 20221220

REACTIONS (2)
  - Hypogammaglobulinaemia [Recovered/Resolved]
  - Drug ineffective [Unknown]

NARRATIVE: CASE EVENT DATE: 20230101
